FAERS Safety Report 15506242 (Version 1)
Quarter: 2020Q3

REPORT INFORMATION
  Report Type: Report from Study
  Country: KR (occurrence: KR)
  Receive Date: 20181016
  Receipt Date: 20181016
  Transmission Date: 20201104
  Serious: Yes (Death, Hospitalization, Other)
  Sender: FDA-Public Use
  Company Number: KR-ASTRAZENECA-2016SE27074

PATIENT
  Age: 23105 Day
  Sex: Male

DRUGS (14)
  1. MEDI4736 [Suspect]
     Active Substance: DURVALUMAB
     Indication: NON-SMALL CELL LUNG CANCER
     Dosage: 1622.0MG ONCE/SINGLE ADMINISTRATION
     Route: 042
     Dates: start: 20151201, end: 20151201
  2. FENTORA BUCCAL [Concomitant]
     Indication: PELVIC PAIN
     Route: 048
     Dates: start: 20160112, end: 20160419
  3. MESULID [Concomitant]
     Active Substance: NIMESULIDE
     Indication: PELVIC PAIN
     Route: 048
     Dates: start: 20151119
  4. TREMELIMUMAB. [Suspect]
     Active Substance: TREMELIMUMAB
     Indication: NON-SMALL CELL LUNG CANCER
     Dosage: 81.1MG ONCE/SINGLE ADMINISTRATION
     Route: 042
     Dates: start: 20151201, end: 20151201
  5. TREMELIMUMAB. [Suspect]
     Active Substance: TREMELIMUMAB
     Indication: NON-SMALL CELL LUNG CANCER
     Dosage: 81.1MG ONCE/SINGLE ADMINISTRATION
     Route: 042
     Dates: start: 20151230, end: 20151230
  6. DIABEX [Concomitant]
     Active Substance: METFORMIN HYDROCHLORIDE
     Indication: DIABETES MELLITUS
     Route: 048
  7. GASTER [Concomitant]
     Active Substance: FAMOTIDINE
     Indication: GASTRIC DISORDER
     Route: 048
     Dates: start: 20160126, end: 20160517
  8. ULTRACET [Concomitant]
     Active Substance: ACETAMINOPHEN\TRAMADOL HYDROCHLORIDE
     Indication: PAIN
     Route: 048
     Dates: start: 20160112, end: 20160427
  9. TARGIN PR [Concomitant]
     Indication: PELVIC PAIN
     Route: 048
     Dates: start: 20160223
  10. MEDI4736 [Suspect]
     Active Substance: DURVALUMAB
     Indication: NON-SMALL CELL LUNG CANCER
     Dosage: 1622.0MG ONCE/SINGLE ADMINISTRATION
     Route: 042
     Dates: start: 20151230, end: 20151230
  11. MEDI4736 [Suspect]
     Active Substance: DURVALUMAB
     Indication: NON-SMALL CELL LUNG CANCER
     Dosage: 1622.0MG ONCE/SINGLE ADMINISTRATION
     Route: 042
     Dates: end: 20160322
  12. STUDY PROCEDURE [Suspect]
     Active Substance: INVESTIGATIONAL PRODUCT
     Indication: NON-SMALL CELL LUNG CANCER
     Route: 065
  13. MEDI4736 [Suspect]
     Active Substance: DURVALUMAB
     Indication: NON-SMALL CELL LUNG CANCER
     Dosage: 1622.0MG ONCE/SINGLE ADMINISTRATION
     Route: 042
     Dates: start: 20160223, end: 20160223
  14. TREMELIMUMAB. [Suspect]
     Active Substance: TREMELIMUMAB
     Indication: NON-SMALL CELL LUNG CANCER
     Dosage: 81.1MG ONCE/SINGLE ADMINISTRATION
     Route: 042
     Dates: start: 20160223, end: 20160223

REACTIONS (1)
  - Interstitial lung disease [Recovered/Resolved]

NARRATIVE: CASE EVENT DATE: 20160227
